FAERS Safety Report 7338845-0 (Version None)
Quarter: 2011Q1

REPORT INFORMATION
  Report Type: 
  Country: None (occurrence: None)
  Receive Date: 20110308
  Receipt Date: 20110303
  Transmission Date: 20110831
  Serious: Yes (Other)
  Sender: FDA-Public Use
  Company Number: BR-PFIZER INC-2010070367

PATIENT
  Age: 53 Year
  Sex: Female
  Weight: 82 kg

DRUGS (6)
  1. MICARDIS HCT [Concomitant]
     Indication: HYPERTENSION
     Dosage: 80/12.5 MG
     Route: 048
     Dates: start: 20080101
  2. ATENOLOL [Suspect]
     Dosage: 25 MG, 1X/DAY
     Route: 048
     Dates: start: 20080201
  3. PURAN T4 [Concomitant]
     Indication: HYPOTHYROIDISM
     Route: 048
  4. ATENOLOL [Suspect]
     Indication: TACHYCARDIA
     Dosage: 50 MG, 1X/DAY
     Route: 048
     Dates: start: 20000101, end: 20080201
  5. METFORMIN [Concomitant]
     Indication: DIABETES MELLITUS
     Dosage: UNK
     Route: 048
     Dates: start: 20080101
  6. ALPRAZOLAM [Suspect]
     Indication: DEPRESSION
     Dosage: 1 MG, 1X/DAY
     Route: 048

REACTIONS (5)
  - CHOLELITHIASIS [None]
  - DIABETES MELLITUS [None]
  - HYPERTENSION [None]
  - DEPRESSION [None]
  - SOMNOLENCE [None]
